FAERS Safety Report 6176912-8 (Version None)
Quarter: 2009Q2

REPORT INFORMATION
  Report Type: 
  Country: None (occurrence: None)
  Receive Date: 20090501
  Receipt Date: 20090417
  Transmission Date: 20091009
  Serious: Yes (Hospitalization, Other)
  Sender: FDA-Public Use
  Company Number: US-ROCHE-610570

PATIENT
  Sex: Female
  Weight: 60.3 kg

DRUGS (1)
  1. ACCUTANE [Suspect]
     Indication: ACNE
     Route: 065
     Dates: start: 19991101, end: 20000201

REACTIONS (14)
  - ANAEMIA [None]
  - COLITIS ULCERATIVE [None]
  - CROHN'S DISEASE [None]
  - DEPRESSION [None]
  - DIZZINESS [None]
  - HAEMATOCHEZIA [None]
  - HAEMORRHOIDS [None]
  - ILEITIS [None]
  - INFLAMMATORY BOWEL DISEASE [None]
  - INTESTINAL OBSTRUCTION [None]
  - MENTAL DISORDER [None]
  - ORAL HERPES [None]
  - SUICIDAL IDEATION [None]
  - SUICIDE ATTEMPT [None]
